FAERS Safety Report 17523710 (Version 1)
Quarter: 2020Q1

REPORT INFORMATION
  Report Type: Spontaneous
  Country: GB (occurrence: GB)
  Receive Date: 20200310
  Receipt Date: 20200310
  Transmission Date: 20200409
  Serious: Yes (Hospitalization)
  Sender: FDA-Public Use
  Company Number: GB-TEVA-2020-GB-1196297

PATIENT
  Age: 34 Year
  Sex: Female

DRUGS (3)
  1. CLOBAZAM. [Concomitant]
     Active Substance: CLOBAZAM
  2. OMEPRAZOLE. [Concomitant]
     Active Substance: OMEPRAZOLE
  3. SODIUM VALPROATE [Suspect]
     Active Substance: VALPROATE SODIUM
     Route: 048

REACTIONS (1)
  - Pancreatitis acute [Recovering/Resolving]
